FAERS Safety Report 17098738 (Version 1)
Quarter: 2019Q4

REPORT INFORMATION
  Report Type: Spontaneous
  Country: US (occurrence: US)
  Receive Date: 20191105
  Receipt Date: 20191105
  Transmission Date: 20200122
  Serious: No
  Sender: FDA-Public Use
  Company Number: None

PATIENT
  Sex: Female

DRUGS (1)
  1. COPAXONE [Suspect]
     Active Substance: GLATIRAMER ACETATE
     Indication: MULTIPLE SCLEROSIS
     Route: 058
     Dates: start: 20191012

REACTIONS (7)
  - Chills [None]
  - Middle insomnia [None]
  - Burning sensation [None]
  - Aphasia [None]
  - Cognitive disorder [None]
  - Drug ineffective [None]
  - Migraine [None]
